FAERS Safety Report 6120135-5 (Version None)
Quarter: 2009Q1

REPORT INFORMATION
  Report Type: 
  Country: None (occurrence: None)
  Receive Date: 20090316
  Receipt Date: 20090306
  Transmission Date: 20090719
  Serious: Yes (Hospitalization)
  Sender: FDA-Public Use
  Company Number: US-MERCK-0903USA01665

PATIENT
  Age: 75 Year
  Sex: Female

DRUGS (13)
  1. HYDRODIURIL [Suspect]
     Route: 048
     Dates: end: 20051201
  2. LASIX [Suspect]
     Route: 065
     Dates: end: 20051201
  3. COREG [Concomitant]
     Route: 048
     Dates: end: 20051201
  4. COREG [Concomitant]
     Route: 048
     Dates: start: 20051201
  5. ASPIRIN [Concomitant]
     Route: 048
  6. PREDNISONE [Concomitant]
     Route: 048
  7. DUONEB [Concomitant]
     Route: 065
  8. LEVALBUTEROL [Concomitant]
  9. SPIRIVA [Concomitant]
  10. INSULIN, ISOPHANE [Concomitant]
     Route: 058
  11. INSULIN, ISOPHANE [Concomitant]
     Route: 058
  12. INSULIN, ISOPHANE [Concomitant]
     Route: 058
  13. CARDIZEM [Concomitant]
     Route: 065
     Dates: end: 20051201

REACTIONS (4)
  - CONVULSION [None]
  - HYPONATRAEMIA [None]
  - HYPOVOLAEMIA [None]
  - SYNCOPE [None]
